FAERS Safety Report 7005379-2 (Version None)
Quarter: 2010Q3

REPORT INFORMATION
  Report Type: 
  Country: None (occurrence: None)
  Receive Date: 20100921
  Receipt Date: 20100913
  Transmission Date: 20110219
  Serious: Yes (Other)
  Sender: FDA-Public Use
  Company Number: US-JNJFOC-20100701588

PATIENT
  Sex: Male

DRUGS (3)
  1. LEVAQUIN [Suspect]
     Indication: SINUS CONGESTION
     Route: 048
  2. LEVAQUIN [Suspect]
     Indication: COLITIS
     Route: 048
  3. LEVAQUIN [Suspect]
     Indication: PRODUCT USED FOR UNKNOWN INDICATION
     Route: 042

REACTIONS (3)
  - BURSITIS [None]
  - OSTEOARTHRITIS [None]
  - ROTATOR CUFF SYNDROME [None]
